FAERS Safety Report 24558551 (Version 2)
Quarter: 2024Q4

REPORT INFORMATION
  Report Type: Spontaneous
  Country: ES (occurrence: ES)
  Receive Date: 20241029
  Receipt Date: 20241105
  Transmission Date: 20250115
  Serious: Yes (Other)
  Sender: UCB
  Company Number: ES-UCBSA-2024055687

PATIENT
  Age: 60 Year
  Sex: Male

DRUGS (1)
  1. BRIVIACT [Suspect]
     Active Substance: BRIVARACETAM
     Indication: Epilepsy
     Dosage: 25 MILLIGRAM, 2X/DAY (BID)
     Route: 048
     Dates: start: 202308

REACTIONS (3)
  - Arteriovenous malformation [Not Recovered/Not Resolved]
  - Binocular eye movement disorder [Not Recovered/Not Resolved]
  - Diplopia [Not Recovered/Not Resolved]
